FAERS Safety Report 4390821-6 (Version None)
Quarter: 2004Q3

REPORT INFORMATION
  Report Type: 
  Country: None (occurrence: None)
  Receive Date: 20040706
  Receipt Date: 20040706
  Transmission Date: 20050211
  Serious: Yes (Hospitalization)
  Sender: FDA-Public Use
  Company Number: None

PATIENT
  Age: 3 Year
  Sex: Female
  Weight: 16 kg

DRUGS (6)
  1. RASBURICASE [Suspect]
     Indication: TUMOUR LYSIS SYNDROME
     Dosage: 0.4 MG.KG Q 12-24 HO INTRAVENOUS
     Route: 042
     Dates: start: 20040123, end: 20040126
  2. ALLOPURINOL [Concomitant]
  3. CHEMOTHERAPY WITH IT METHOTREXATE [Concomitant]
  4. CYTARABINE [Concomitant]
  5. VINCRISTINE [Concomitant]
  6. DEXAMETHASONE [Concomitant]

REACTIONS (2)
  - HAEMATOCRIT DECREASED [None]
  - HAEMATURIA [None]
